FAERS Safety Report 19116034 (Version 2)
Quarter: 2021Q2

REPORT INFORMATION
  Report Type: Report from Study
  Country: US (occurrence: US)
  Receive Date: 20210409
  Receipt Date: 20210416
  Transmission Date: 20210717
  Serious: Yes (Other)
  Sender: FDA-Public Use
  Company Number: US-BAYER-2021-116368

PATIENT
  Age: 84 Year
  Sex: Male

DRUGS (3)
  1. STIVARGA [Suspect]
     Active Substance: REGORAFENIB
     Indication: COLON CANCER
     Dosage: DAILY DOSE 160 MG FOR 21 DAYS ON AND 7 DAYS OFF
  2. STIVARGA [Suspect]
     Active Substance: REGORAFENIB
     Indication: COLON CANCER
     Dosage: 120 MG DAILY DAYS 8?14
     Dates: start: 20210329
  3. STIVARGA [Suspect]
     Active Substance: REGORAFENIB
     Indication: COLON CANCER
     Dosage: 80 MG DAILY ON DAYS 1?7
     Dates: start: 20210322, end: 20210328

REACTIONS (5)
  - Hypersomnia [None]
  - Decreased appetite [None]
  - Diarrhoea [None]
  - Laboratory test abnormal [None]
  - Off label use [None]

NARRATIVE: CASE EVENT DATE: 20210322
